FAERS Safety Report 8051220-9 (Version None)
Quarter: 2012Q1

REPORT INFORMATION
  Report Type: 
  Country: None (occurrence: None)
  Receive Date: 20120117
  Receipt Date: 20120116
  Transmission Date: 20120608
  Serious: Yes (Death)
  Sender: FDA-Public Use
  Company Number: BR-B.I. PHARMACEUTICALS,INC./RIDGEFIELD-2012-BR-00060BR

PATIENT
  Age: 72 Year
  Sex: Male

DRUGS (5)
  1. PRADAXA [Suspect]
     Dosage: 300 MG
     Dates: end: 20111101
  2. ANESTHETIC [Concomitant]
     Indication: ANAESTHESIA
  3. HYPOGLYCEMICS [Concomitant]
     Route: 048
  4. BETA BLOCKING AGENT [Concomitant]
  5. ANGIOTENSIN II RECEPTOR ANTAGONIST [Concomitant]

REACTIONS (1)
  - BRADYCARDIA [None]
